FAERS Safety Report 9299063 (Version 1)
Quarter: 2013Q2

REPORT INFORMATION
  Report Type: Spontaneous
  Country: BR (occurrence: BR)
  Receive Date: 20130520
  Receipt Date: 20130520
  Transmission Date: 20140414
  Serious: Yes (Hospitalization)
  Sender: FDA-Public Use
  Company Number: BR-BRISTOL-MYERS SQUIBB COMPANY-18860361

PATIENT
  Age: 66 Year
  Sex: Male

DRUGS (5)
  1. ONGLYZA TABS 5 MG [Suspect]
     Indication: DIABETES MELLITUS
     Dosage: 1 TABS?10 MONTHS AGO
     Dates: start: 20120515
  2. GLIFAGE XR [Suspect]
     Indication: DIABETES MELLITUS
     Dates: start: 20120515
  3. SIMVASTATIN [Concomitant]
  4. ENALAPRIL [Concomitant]
  5. SELOZOK [Concomitant]

REACTIONS (1)
  - Pancreatitis acute [Recovering/Resolving]
